FAERS Safety Report 12288041 (Version 1)
Quarter: 2016Q2

REPORT INFORMATION
  Report Type: Other
  Country: US (occurrence: US)
  Receive Date: 20160420
  Receipt Date: 20160420
  Transmission Date: 20160815
  Serious: Yes (Hospitalization)
  Sender: FDA-Public Use
  Company Number: US-MARY KAY INC.-1050808

PATIENT
  Age: 14 Year
  Sex: Female

DRUGS (3)
  1. CLEAR PROOF ACNE TREATMENT ACNE MEDICATION [Suspect]
     Active Substance: BENZOYL PEROXIDE
     Indication: ACNE
     Route: 061
     Dates: start: 20160307, end: 20160314
  2. CLEAR PROOF BLEMISH CONTROL TONER ACNE MEDICATION [Suspect]
     Active Substance: SALICYLIC ACID
     Route: 061
     Dates: start: 20160307, end: 20160314
  3. CLEAR PROOF CLARIFYING CLEANSING GEL ACNE MEDICATION [Suspect]
     Active Substance: SALICYLIC ACID
     Route: 061
     Dates: start: 20160307, end: 20160314

REACTIONS (1)
  - Drug hypersensitivity [Recovering/Resolving]

NARRATIVE: CASE EVENT DATE: 20160307
